FAERS Safety Report 11860243 (Version 2)
Quarter: 2016Q2

REPORT INFORMATION
  Report Type: Spontaneous
  Country: US (occurrence: US)
  Receive Date: 20151222
  Receipt Date: 20160411
  Transmission Date: 20160815
  Serious: Yes (Life-Threatening, Hospitalization, Other)
  Sender: FDA-Public Use
  Company Number: US-PFIZER INC-2015419711

PATIENT
  Age: 61 Year
  Sex: Male
  Weight: 73 kg

DRUGS (4)
  1. REVATIO [Suspect]
     Active Substance: SILDENAFIL CITRATE
     Indication: CARDIAC FAILURE CONGESTIVE
     Dosage: 20 MG, 3X/DAY
     Route: 048
     Dates: start: 20140430, end: 20151111
  2. REVATIO [Suspect]
     Active Substance: SILDENAFIL CITRATE
     Indication: PULMONARY HYPERTENSION
  3. NOVOLOG [Concomitant]
     Active Substance: INSULIN ASPART
     Indication: DIABETES MELLITUS
     Dosage: UNK
  4. LANTUS [Concomitant]
     Active Substance: INSULIN GLARGINE
     Indication: DIABETES MELLITUS
     Dosage: UNK

REACTIONS (23)
  - Respiratory distress [Unknown]
  - Hypoxia [Unknown]
  - Pneumonitis [Unknown]
  - Aphasia [Unknown]
  - Sepsis [Not Recovered/Not Resolved]
  - Candida infection [Unknown]
  - Lipase increased [Unknown]
  - Staphylococcal bacteraemia [Unknown]
  - Supraventricular tachycardia [Unknown]
  - Dysphagia [Unknown]
  - Weaning failure [Recovered/Resolved]
  - Seizure [Unknown]
  - Amylase increased [Unknown]
  - Postoperative respiratory failure [Recovered/Resolved]
  - Delirium [Not Recovered/Not Resolved]
  - Confusional state [Unknown]
  - Cognitive disorder [Unknown]
  - Ventricular tachycardia [Unknown]
  - Weight decreased [Not Recovered/Not Resolved]
  - Medical device site infection [Not Recovered/Not Resolved]
  - Amnesia [Unknown]
  - Anaemia [Unknown]
  - Medical device site pain [Unknown]

NARRATIVE: CASE EVENT DATE: 2015
